FAERS Safety Report 10705732 (Version 2)
Quarter: 2022Q3

REPORT INFORMATION
  Report Type: Spontaneous
  Country: ES (occurrence: ES)
  Receive Date: 20150112
  Receipt Date: 20220821
  Transmission Date: 20221026
  Serious: Yes (Hospitalization, Other)
  Sender: FDA-Public Use
  Company Number: ES-GLAXOSMITHKLINE-ES2014GSK043813

PATIENT
  Age: 47 Year
  Sex: Male

DRUGS (3)
  1. LAMOTRIGINE [Suspect]
     Active Substance: LAMOTRIGINE
     Indication: Product used for unknown indication
     Dosage: 100 MG, BID
     Route: 065
  2. PHENYTOIN [Suspect]
     Active Substance: PHENYTOIN
     Indication: Product used for unknown indication
     Dosage: 100 MG, TID
     Route: 065
  3. CLOBAZAM [Suspect]
     Active Substance: CLOBAZAM
     Indication: Product used for unknown indication
     Dosage: 10 MG, QD
     Route: 065

REACTIONS (11)
  - Tubulointerstitial nephritis [Recovering/Resolving]
  - Nausea [Unknown]
  - Vomiting [Unknown]
  - Oliguria [Unknown]
  - Abdominal pain [Unknown]
  - Renal failure [Recovering/Resolving]
  - Hepatic function abnormal [Unknown]
  - Renal failure [Recovering/Resolving]
  - Oedema [Unknown]
  - Gastrointestinal inflammation [Unknown]
  - Drug reaction with eosinophilia and systemic symptoms [Unknown]
